FAERS Safety Report 7766127-1 (Version None)
Quarter: 2011Q3

REPORT INFORMATION
  Report Type: 
  Country: None (occurrence: None)
  Receive Date: 20110921
  Receipt Date: 20110916
  Transmission Date: 20111222
  Serious: Yes (Hospitalization, Other)
  Sender: FDA-Public Use
  Company Number: NO-PFIZER INC-2011198330

PATIENT
  Age: 65 Year
  Sex: Female

DRUGS (3)
  1. APROVEL [Concomitant]
     Indication: HYPERTENSION
     Dosage: 75 MG, 1X/DAY
  2. TOVIAZ [Suspect]
     Indication: URGE INCONTINENCE
  3. TOVIAZ [Suspect]
     Indication: POLLAKIURIA
     Dosage: 4 MG, UNK
     Dates: start: 20110203, end: 20110216

REACTIONS (2)
  - ATRIAL FIBRILLATION [None]
  - GLAUCOMA [None]
